FAERS Safety Report 6377649-2 (Version None)
Quarter: 2009Q3

REPORT INFORMATION
  Report Type: 
  Country: None (occurrence: None)
  Receive Date: 20090925
  Receipt Date: 20090914
  Transmission Date: 20100115
  Serious: Yes (Hospitalization)
  Sender: FDA-Public Use
  Company Number: CHNY2009GB03359

PATIENT
  Sex: Male
  Weight: 106 kg

DRUGS (2)
  1. NICOTINELL GUM (NCH) [Suspect]
     Indication: SMOKING CESSATION THERAPY
     Dosage: 4 MG, UNK
     Route: 002
     Dates: start: 20090817, end: 20090817
  2. METFORMIN HCL [Concomitant]
     Indication: DIABETES MELLITUS
     Dosage: 500 MG, BID
     Dates: start: 20090717

REACTIONS (9)
  - APHASIA [None]
  - CHEST PAIN [None]
  - CONSTIPATION [None]
  - DYSPNOEA [None]
  - HYPERSENSITIVITY [None]
  - OCULAR HYPERAEMIA [None]
  - OEDEMA MOUTH [None]
  - PARAESTHESIA [None]
  - SWOLLEN TONGUE [None]
